FAERS Safety Report 4449995-0 (Version None)
Quarter: 2004Q3

REPORT INFORMATION
  Report Type: 
  Country: None (occurrence: None)
  Receive Date: 20040804
  Receipt Date: 20031010
  Transmission Date: 20050211
  Serious: Yes (Hospitalization)
  Sender: FDA-Public Use
  Company Number: 202832

PATIENT
  Age: 65 Year
  Sex: Female

DRUGS (2)
  1. HERCEPTIN [Suspect]
     Indication: BREAST CANCER METASTATIC
     Route: 042
     Dates: end: 20031007
  2. VINORELBINE (VINORELBINE) [Concomitant]

REACTIONS (1)
  - PULMONARY OEDEMA [None]
